FAERS Safety Report 4881825-5 (Version None)
Quarter: 2006Q1

REPORT INFORMATION
  Report Type: 
  Country: None (occurrence: None)
  Receive Date: 20060117
  Receipt Date: 20060105
  Transmission Date: 20060701
  Serious: Yes (Death)
  Sender: FDA-Public Use
  Company Number: CH-BRISTOL-MYERS SQUIBB COMPANY-13238985

PATIENT
  Age: 43 Year
  Sex: Female

DRUGS (5)
  1. METHOTREXATE [Suspect]
     Indication: RHEUMATOID ARTHRITIS
     Route: 048
     Dates: start: 20020326, end: 20050929
  2. ARAVA [Suspect]
     Route: 048
     Dates: start: 20050726, end: 20050929
  3. SPIRICORT [Suspect]
     Route: 048
     Dates: start: 20050201, end: 20050929
  4. TRIAMCORT [Concomitant]
     Indication: OSTEOARTHRITIS
     Route: 035
     Dates: start: 20050919, end: 20050919
  5. LIDOCAINE [Concomitant]
     Indication: OSTEOARTHRITIS
     Route: 035
     Dates: start: 20050919, end: 20050919

REACTIONS (2)
  - INTRAVENTRICULAR HAEMORRHAGE [None]
  - SUBARACHNOID HAEMORRHAGE [None]
